FAERS Safety Report 7957679-7 (Version None)
Quarter: 2011Q4

REPORT INFORMATION
  Report Type: 
  Country: None (occurrence: None)
  Receive Date: 20111205
  Receipt Date: 20111125
  Transmission Date: 20120403
  Serious: Yes (Other)
  Sender: FDA-Public Use
  Company Number: PHHY2010CA73135

PATIENT
  Sex: Male

DRUGS (6)
  1. ANTIBIOTICS [Concomitant]
     Dosage: UNK UKN, UNK
     Dates: start: 20110918, end: 20110923
  2. EXJADE [Suspect]
     Indication: THALASSAEMIA
     Dosage: 500 MG, QD
     Route: 048
     Dates: start: 20100901
  3. PENICILLIN [Concomitant]
     Route: 030
  4. EXJADE [Suspect]
     Dosage: 1000 MG, QD
     Route: 048
  5. FOLIC ACID [Concomitant]
     Route: 048
  6. EXJADE [Suspect]
     Dosage: 1500 MG, QD
     Route: 048

REACTIONS (17)
  - SKIN DISCOLOURATION [None]
  - TOOTH DISORDER [None]
  - CARDIOMEGALY [None]
  - ERYTHEMA [None]
  - DECREASED APPETITE [None]
  - LIVER DISORDER [None]
  - ASTHENIA [None]
  - MYALGIA [None]
  - ARTHRALGIA [None]
  - GAIT DISTURBANCE [None]
  - SKIN INFECTION [None]
  - PURULENT DISCHARGE [None]
  - ACNE [None]
  - WEIGHT DECREASED [None]
  - PAIN IN EXTREMITY [None]
  - VISUAL IMPAIRMENT [None]
  - SERUM FERRITIN INCREASED [None]
